FAERS Safety Report 24641805 (Version 2)
Quarter: 2025Q2

REPORT INFORMATION
  Report Type: Report from Study
  Country: US (occurrence: US)
  Receive Date: 20241120
  Receipt Date: 20250506
  Transmission Date: 20250717
  Serious: No
  Sender: BRISTOL-MYERS SQUIBB COMPANY
  Company Number: US-BRISTOL-MYERS SQUIBB COMPANY-2024-181374

PATIENT
  Age: 74 Year
  Sex: Female
  Weight: 64.32 kg

DRUGS (5)
  1. REVLIMID [Suspect]
     Active Substance: LENALIDOMIDE
     Indication: Plasma cell myeloma
     Dosage: 1 X 21 DAYS
     Route: 048
     Dates: start: 20241028
  2. REVLIMID [Suspect]
     Active Substance: LENALIDOMIDE
     Dosage: 1 X 21 DAYS
     Route: 048
     Dates: start: 20241028
  3. ACYCLOVIR [Concomitant]
     Active Substance: ACYCLOVIR
     Indication: Product used for unknown indication
  4. GABAPENTIN [Concomitant]
     Active Substance: GABAPENTIN
     Indication: Product used for unknown indication
  5. ASPIRIN [Concomitant]
     Active Substance: ASPIRIN
     Indication: Product used for unknown indication

REACTIONS (2)
  - Muscle spasms [Not Recovered/Not Resolved]
  - Blood potassium increased [Unknown]
